FAERS Safety Report 4366130-8 (Version None)
Quarter: 2004Q2

REPORT INFORMATION
  Report Type: 
  Country: None (occurrence: None)
  Receive Date: 20040524
  Receipt Date: 20040513
  Transmission Date: 20050107
  Serious: No
  Sender: FDA-Public Use
  Company Number: 2004SE02710

PATIENT
  Age: 58 Year
  Sex: Female

DRUGS (6)
  1. AMIAS [Suspect]
     Indication: HYPERTENSION
     Dosage: 4 MG DAILY PO
     Route: 048
     Dates: start: 20031230, end: 20040416
  2. ALBUTEROL SULFATE [Concomitant]
  3. ROFECOXIB [Concomitant]
  4. DILTIAZEM [Concomitant]
  5. BENDROFLUAZIDE [Concomitant]
  6. BECLOMETHASONE DIPROPIONATE [Concomitant]

REACTIONS (2)
  - COLITIS [None]
  - DIARRHOEA [None]
